FAERS Safety Report 5105271-4 (Version None)
Quarter: 2006Q3

REPORT INFORMATION
  Report Type: 
  Country: None (occurrence: None)
  Receive Date: 20060911
  Receipt Date: 20060907
  Transmission Date: 20061208
  Serious: Yes (Other)
  Sender: FDA-Public Use
  Company Number: PIR# 0608045

PATIENT
  Age: 23 Year
  Sex: Male

DRUGS (1)
  1. CEFAZOLIN [Suspect]
     Dosage: 1G ONCE IV
     Route: 042

REACTIONS (1)
  - SERUM SICKNESS [None]
